FAERS Safety Report 16379134 (Version 1)
Quarter: 2019Q2

REPORT INFORMATION
  Report Type: Report from Study
  Country: US (occurrence: US)
  Receive Date: 20190531
  Receipt Date: 20190531
  Transmission Date: 20190711
  Serious: Yes (Hospitalization, Other)
  Sender: FDA-Public Use
  Company Number: US-TEVA-2019-US-1054943

PATIENT
  Sex: Female

DRUGS (2)
  1. HEPARIN [Suspect]
     Active Substance: HEPARIN SODIUM
     Route: 065
  2. COPAXONE [Suspect]
     Active Substance: GLATIRAMER ACETATE
     Dosage: FORM STRENGTH : UNKNOWN
     Route: 065

REACTIONS (4)
  - Heparin-induced thrombocytopenia [Unknown]
  - Chest pain [Unknown]
  - Myocardial infarction [Unknown]
  - Adrenal disorder [Unknown]

NARRATIVE: CASE EVENT DATE: 2008
